FAERS Safety Report 6609529-9 (Version None)
Quarter: 2010Q1

REPORT INFORMATION
  Report Type: 
  Country: None (occurrence: None)
  Receive Date: 20100224
  Receipt Date: 20100216
  Transmission Date: 20100710
  Serious: Yes (Death)
  Sender: FDA-Public Use
  Company Number: 2009SP032904

PATIENT
  Age: 58 Year
  Sex: Female

DRUGS (1)
  1. MIRTAZAPINE [Suspect]
     Indication: DEPRESSION
     Dosage: 15 MG;D;PO
     Route: 048
     Dates: start: 20090930

REACTIONS (3)
  - COMPLETED SUICIDE [None]
  - DELUSION [None]
  - FALL [None]
